FAERS Safety Report 4290077-9 (Version None)
Quarter: 2004Q1

REPORT INFORMATION
  Report Type: 
  Country: None (occurrence: None)
  Receive Date: 20040206
  Receipt Date: 20040206
  Transmission Date: 20041129
  Serious: No
  Sender: FDA-Public Use
  Company Number: None

PATIENT
  Sex: Female
  Weight: 54.4316 kg

DRUGS (1)
  1. BACTRIM [Suspect]
     Indication: URINARY TRACT INFECTION
     Dates: start: 19980601, end: 19980604

REACTIONS (4)
  - FATIGUE [None]
  - HYPERSENSITIVITY [None]
  - MYALGIA [None]
  - STEVENS-JOHNSON SYNDROME [None]
